FAERS Safety Report 6611001-7 (Version None)
Quarter: 2010Q1

REPORT INFORMATION
  Report Type: 
  Country: None (occurrence: None)
  Receive Date: 20100222
  Receipt Date: 20100205
  Transmission Date: 20100710
  Serious: Yes (Death, Other)
  Sender: FDA-Public Use
  Company Number: 2010000476

PATIENT
  Age: 41 Year
  Sex: Female

DRUGS (6)
  1. TARCEVA [Suspect]
     Indication: LUNG ADENOCARCINOMA STAGE IV
     Dosage: 150 MG, ORAL
     Route: 048
     Dates: start: 20090109, end: 20090723
  2. AVASTIN [Suspect]
     Indication: DRUG USE FOR UNKNOWN INDICATION
     Dosage: INTRAVENOUS
     Route: 042
     Dates: start: 20071217, end: 20080415
  3. CARBOPLATIN [Concomitant]
  4. GEMCITABINE [Concomitant]
  5. PAMIDRONIC ACID (PAMIDRONIC ACID) [Concomitant]
  6. PEMETREXED [Concomitant]

REACTIONS (4)
  - BLOOD DISORDER [None]
  - CEREBROVASCULAR ACCIDENT [None]
  - DISEASE PROGRESSION [None]
  - RASH [None]
